FAERS Safety Report 8960062 (Version 1)
Quarter: 2012Q4

REPORT INFORMATION
  Report Type: Report from Study
  Country: IT (occurrence: IT)
  Receive Date: 20121212
  Receipt Date: 20121212
  Transmission Date: 20130627
  Serious: Yes (Hospitalization)
  Sender: FDA-Public Use
  Company Number: IT-ROCHE-1168031

PATIENT
  Age: 59 Year
  Sex: Male

DRUGS (2)
  1. TRASTUZUMAB [Suspect]
     Indication: GASTROOESOPHAGEAL CANCER
     Route: 042
     Dates: start: 20120213, end: 20121005
  2. XELODA [Concomitant]
     Indication: GASTROOESOPHAGEAL CANCER
     Route: 048
     Dates: start: 20120213, end: 20121114

REACTIONS (1)
  - Candida sepsis [Recovered/Resolved]
